FAERS Safety Report 17987541 (Version 2)
Quarter: 2020Q3

REPORT INFORMATION
  Report Type: Spontaneous
  Country: US (occurrence: US)
  Receive Date: 20200707
  Receipt Date: 20200717
  Transmission Date: 20201103
  Serious: No
  Sender: FDA-Public Use
  Company Number: US-009507513-2007USA001214

PATIENT
  Sex: Female

DRUGS (4)
  1. NASACORT [Suspect]
     Active Substance: TRIAMCINOLONE ACETONIDE
     Indication: NASAL CONGESTION
     Dosage: UNK
  2. MOMETASONE FUROATE. [Suspect]
     Active Substance: MOMETASONE FUROATE
     Indication: NASAL CONGESTION
     Dosage: UNK
  3. FLONASE [Suspect]
     Active Substance: FLUTICASONE PROPIONATE
     Indication: NASAL CONGESTION
     Dosage: UNK
  4. NASONEX [Suspect]
     Active Substance: MOMETASONE FUROATE
     Indication: NASAL CONGESTION
     Dosage: UNK, STRENGTH 50 (UNITS UNSPEIFIED)
     Route: 045
     Dates: start: 2000

REACTIONS (5)
  - Sinusitis [Recovered/Resolved]
  - Product quality issue [Unknown]
  - Nasal polyps [Recovered/Resolved]
  - Drug ineffective [Unknown]
  - Poor quality device used [Unknown]
